FAERS Safety Report 17940013 (Version 2)
Quarter: 2020Q3

REPORT INFORMATION
  Report Type: Spontaneous
  Country: US (occurrence: US)
  Receive Date: 20200625
  Receipt Date: 20200709
  Transmission Date: 20201103
  Serious: No
  Sender: FDA-Public Use
  Company Number: US-SA-2020SA153680

PATIENT

DRUGS (1)
  1. GOLD BOND ULTIMATE RESTORING WITH COQ10 [COSMETICS] [Suspect]
     Active Substance: COSMETICS
     Dosage: UNK

REACTIONS (1)
  - Expired product administered [Unknown]
